FAERS Safety Report 10996765 (Version 1)
Quarter: 2015Q2

REPORT INFORMATION
  Report Type: Spontaneous
  Country: US (occurrence: None)
  Receive Date: 20150407
  Receipt Date: 20150407
  Transmission Date: 20150821
  Serious: No
  Sender: FDA-Public Use
  Company Number: None

PATIENT
  Age: 62 Year

DRUGS (1)
  1. FLUOXETINE [Suspect]
     Active Substance: FLUOXETINE\FLUOXETINE HYDROCHLORIDE
     Indication: DEPRESSION
     Dosage: ONE DAILY ONCE DAILY TAKEN BY MOUTH
     Route: 048
     Dates: start: 20140901, end: 20141025

REACTIONS (4)
  - Product quality issue [None]
  - Dyspepsia [None]
  - Product substitution issue [None]
  - Heart rate irregular [None]

NARRATIVE: CASE EVENT DATE: 20141024
